FAERS Safety Report 7077253-7 (Version None)
Quarter: 2010Q4

REPORT INFORMATION
  Report Type: 
  Country: None (occurrence: None)
  Receive Date: 20101101
  Receipt Date: 20101025
  Transmission Date: 20110411
  Serious: Yes (Death, Other)
  Sender: FDA-Public Use
  Company Number: US-ROCHE-737084

PATIENT

DRUGS (6)
  1. MYCOPHENOLATE MOFETIL [Suspect]
     Dosage: DOSE TITRATED TO A TROUGH OF 1.5-3.0 NG/ML.
     Route: 065
  2. ALEMTUZUMAB [Suspect]
     Dosage: INDUCTION THERAPY, DRUG: CAMPATH-1H
     Route: 065
  3. METHYLPREDNISOLONE [Suspect]
     Dosage: DAY ONE OF STEROID THERAPY.
     Route: 065
  4. METHYLPREDNISOLONE [Suspect]
     Dosage: ON DAY 2 OF START OF THERAPY.
     Route: 065
  5. METHYLPREDNISOLONE [Suspect]
     Dosage: STEROID WITHDRAWAL ON DAY 3 OF THERAPY.
     Route: 065
  6. TACROLIMUS [Suspect]
     Dosage: TROUGH LEVELS OF 8-12 NG/ML
     Route: 065

REACTIONS (6)
  - CARDIAC DISORDER [None]
  - EPSTEIN-BARR VIRUS ASSOCIATED LYMPHOPROLIFERATIVE DISORDER [None]
  - LUNG NEOPLASM MALIGNANT [None]
  - SEPSIS [None]
  - TRANSPLANT FAILURE [None]
  - TRANSPLANT REJECTION [None]
